FAERS Safety Report 8327868-0 (Version None)
Quarter: 2012Q2

REPORT INFORMATION
  Report Type: 
  Country: None (occurrence: None)
  Receive Date: 20120502
  Receipt Date: 20120424
  Transmission Date: 20120825
  Serious: Yes (Other)
  Sender: FDA-Public Use
  Company Number: ES-MPIJNJ-2012-02854

PATIENT

DRUGS (3)
  1. THALIDOMIDE [Concomitant]
  2. VELCADE [Suspect]
     Indication: MULTIPLE MYELOMA
     Route: 058
  3. DEXAMETHASONE [Concomitant]
     Dosage: UNK

REACTIONS (2)
  - DERMATITIS EXFOLIATIVE [None]
  - INCORRECT ROUTE OF DRUG ADMINISTRATION [None]
